FAERS Safety Report 18702308 (Version 1)
Quarter: 2021Q1

REPORT INFORMATION
  Report Type: Spontaneous
  Country: US (occurrence: US)
  Receive Date: 20210105
  Receipt Date: 20210105
  Transmission Date: 20210419
  Serious: No
  Sender: FDA-Public Use
  Company Number: US-PFIZER INC-2020520165

PATIENT
  Age: 31 Year
  Sex: Female

DRUGS (5)
  1. XELJANZ [Suspect]
     Active Substance: TOFACITINIB CITRATE
     Indication: RHEUMATOID ARTHRITIS
     Dosage: 5 MG, 2X/DAY
     Route: 048
     Dates: start: 20200925
  2. XARELTO [Concomitant]
     Active Substance: RIVAROXABAN
     Indication: FACTOR II DEFICIENCY
     Dosage: 10 MG
  3. METFORMIN [Concomitant]
     Active Substance: METFORMIN HYDROCHLORIDE
     Dosage: UNK
  4. CLINDAMYCIN/SODIUM CHLORIDE [Concomitant]
     Dosage: UNK
  5. SOOLANTRA [Concomitant]
     Active Substance: IVERMECTIN
     Dosage: UNK

REACTIONS (2)
  - Diarrhoea [Unknown]
  - Headache [Not Recovered/Not Resolved]
